FAERS Safety Report 17132102 (Version 2)
Quarter: 2020Q1

REPORT INFORMATION
  Report Type: Spontaneous
  Country: DE (occurrence: DE)
  Receive Date: 20191210
  Receipt Date: 20200306
  Transmission Date: 20200409
  Serious: Yes (Life-Threatening, Hospitalization)
  Sender: FDA-Public Use
  Company Number: DE-AMGEN-DEUSP2019202024

PATIENT
  Age: 69 Year
  Sex: Male

DRUGS (9)
  1. ALLOPURINOL. [Concomitant]
     Active Substance: ALLOPURINOL
     Dosage: 150 MILLIGRAM, QD
     Route: 048
  2. BLINCYTO [Suspect]
     Active Substance: BLINATUMOMAB
     Indication: PHILADELPHIA CHROMOSOME POSITIVE
     Dosage: UNK
     Route: 042
     Dates: start: 20190905, end: 20190907
  3. PANTOPRAZOL [PANTOPRAZOLE] [Concomitant]
     Active Substance: PANTOPRAZOLE
     Dosage: 40 MILLIGRAM, QD
     Route: 048
  4. COTRIMOXAZOL [Concomitant]
     Active Substance: SULFAMETHOXAZOLE\TRIMETHOPRIM
     Dosage: 960 MILLIGRAM, Q3WK
     Route: 048
  5. NOVORAPID [Concomitant]
     Active Substance: INSULIN ASPART
     Dosage: UNK
     Route: 058
  6. BLINCYTO [Interacting]
     Active Substance: BLINATUMOMAB
     Dosage: UNK
     Route: 042
     Dates: end: 20190909
  7. ACICLOVIR [Concomitant]
     Active Substance: ACYCLOVIR
     Dosage: 1200 MILLIGRAM, QD
     Route: 048
  8. STELARA [Interacting]
     Active Substance: USTEKINUMAB
     Indication: PSORIASIS
     Dosage: 1 DF, Q3MO
     Route: 042
  9. LEVEMIR [Concomitant]
     Active Substance: INSULIN DETEMIR
     Dosage: UNK
     Route: 058

REACTIONS (8)
  - Hypotension [Unknown]
  - Confusional state [Unknown]
  - Breast pain [Unknown]
  - Dyspnoea [Unknown]
  - Rash [Unknown]
  - Sinus bradycardia [Unknown]
  - Drug interaction [Unknown]
  - Cytokine release syndrome [Recovered/Resolved]

NARRATIVE: CASE EVENT DATE: 20190907
